FAERS Safety Report 9587259 (Version 5)
Quarter: 2014Q4

REPORT INFORMATION
  Report Type: Spontaneous
  Country: US (occurrence: US)
  Receive Date: 20131003
  Receipt Date: 20141002
  Transmission Date: 20150529
  Serious: Yes (Hospitalization, Other)
  Sender: FDA-Public Use
  Company Number: US-009507513-1203USA00022

PATIENT
  Sex: Female
  Weight: 63.39 kg

DRUGS (3)
  1. FOSAMAX [Suspect]
     Active Substance: ALENDRONATE SODIUM
     Indication: OSTEOPOROSIS
     Dosage: 70 MG, QW
     Route: 048
     Dates: end: 2011
  2. FOSAMAX PLUS D [Suspect]
     Active Substance: ALENDRONATE SODIUM\CHOLECALCIFEROL
     Indication: OSTEOPOROSIS
     Dosage: 70MG/2800IU QW
     Route: 048
     Dates: start: 20080828
  3. ALENDRONATE SODIUM. [Suspect]
     Active Substance: ALENDRONATE SODIUM
     Indication: OSTEOPOROSIS
     Dosage: 70 MG, QW
     Route: 048
     Dates: start: 1995, end: 2011

REACTIONS (41)
  - Intramedullary rod insertion [Unknown]
  - Neck injury [Unknown]
  - Left ventricular hypertrophy [Unknown]
  - Arrhythmia [Unknown]
  - Ankle fracture [Unknown]
  - Vomiting [Unknown]
  - Femur fracture [Unknown]
  - Anorectal operation [Unknown]
  - Depression [Unknown]
  - Hypothyroidism [Unknown]
  - Foot fracture [Unknown]
  - Anal cancer [Unknown]
  - Low turnover osteopathy [Unknown]
  - Dehydration [Unknown]
  - Lumbar spinal stenosis [Unknown]
  - Pubis fracture [Unknown]
  - Pelvic pain [Unknown]
  - Contusion [Unknown]
  - Peripheral swelling [Unknown]
  - Goitre [Unknown]
  - Thyroid neoplasm [Unknown]
  - Inappropriate schedule of drug administration [Unknown]
  - Gait disturbance [Unknown]
  - Arthralgia [Unknown]
  - Arthralgia [Unknown]
  - Bradycardia [Unknown]
  - Fatigue [Unknown]
  - Nausea [Unknown]
  - Electrocardiogram T wave inversion [Unknown]
  - Cervical vertebral fracture [Unknown]
  - Radiotherapy [Unknown]
  - Joint injury [Unknown]
  - Breast cyst [Unknown]
  - Hepatic enzyme abnormal [Unknown]
  - Pain in extremity [Unknown]
  - Dizziness [Unknown]
  - Fall [Unknown]
  - Thyroid operation [Unknown]
  - Road traffic accident [Unknown]
  - Hypertension [Unknown]
  - Heart rate increased [Unknown]

NARRATIVE: CASE EVENT DATE: 2006
